FAERS Safety Report 15115128 (Version 3)
Quarter: 2018Q3

REPORT INFORMATION
  Report Type: Spontaneous
  Country: FR (occurrence: FR)
  Receive Date: 20180706
  Receipt Date: 20180822
  Transmission Date: 20181010
  Serious: Yes (Death, Life-Threatening, Hospitalization)
  Sender: FDA-Public Use
  Company Number: FR-009507513-1807FRA001706

PATIENT
  Age: 62 Year
  Sex: Female
  Weight: 52 kg

DRUGS (12)
  1. METHYLPREDNISOLONE HEMISUCCINATE [Suspect]
     Active Substance: METHYLPREDNISOLONE HEMISUCCINATE
     Indication: ANTIEMETIC SUPPORTIVE CARE
     Dosage: 52 MG, UNKNOWN
     Route: 042
     Dates: start: 20180517, end: 20180517
  2. AVASTIN [Concomitant]
     Active Substance: BEVACIZUMAB
     Indication: LUNG ADENOCARCINOMA
  3. EMEND [Suspect]
     Active Substance: APREPITANT
     Indication: ANTIEMETIC SUPPORTIVE CARE
     Dosage: 125 MG, UNKNOWN
     Route: 048
     Dates: start: 20180517, end: 20180517
  4. ONDANSETRON ACCORD [Suspect]
     Active Substance: ONDANSETRON
     Indication: ANTIEMETIC SUPPORTIVE CARE
     Dosage: 8 MG, UNKNOWN
     Route: 042
     Dates: start: 20180517, end: 20180517
  5. ALIMTA [Suspect]
     Active Substance: PEMETREXED DISODIUM
     Indication: BRONCHIAL CARCINOMA
     Dosage: 791.9 MG, CYCLICAL (UNK, UNKNOWN ; CYCLICAL)
     Route: 042
     Dates: start: 20180517, end: 20180517
  6. CISPLATIN. [Concomitant]
     Active Substance: CISPLATIN
     Indication: LUNG ADENOCARCINOMA
     Dosage: 75 MG/M2, CYCLICAL
     Route: 042
     Dates: start: 20180517, end: 20180517
  7. AVASTIN [Concomitant]
     Active Substance: BEVACIZUMAB
     Indication: BRONCHIAL CARCINOMA
     Dosage: 7.5 MG/KG, CYCLICAL
     Route: 042
     Dates: start: 20180517, end: 20180517
  8. DEXAMETHASONE. [Concomitant]
     Active Substance: DEXAMETHASONE
     Indication: PRODUCT USED FOR UNKNOWN INDICATION
     Dosage: 4 MG, BID
     Route: 065
  9. ALIMTA [Suspect]
     Active Substance: PEMETREXED DISODIUM
     Indication: LUNG ADENOCARCINOMA
  10. CISPLATIN. [Concomitant]
     Active Substance: CISPLATIN
     Indication: BRONCHIAL CARCINOMA
  11. DEXAMETHASONE. [Concomitant]
     Active Substance: DEXAMETHASONE
     Dosage: 8 MG, QD (ALSO REPORTED AS 4MG,BID)
     Route: 065
  12. FOLIC ACID (+) VITAMIN B [Concomitant]
     Indication: PRODUCT USED FOR UNKNOWN INDICATION
     Dosage: UNK, EVERY NINE WEEKS
     Route: 065

REACTIONS (11)
  - Dyspnoea [Fatal]
  - Hypotension [Fatal]
  - Hyperhidrosis [Fatal]
  - Aplasia [Fatal]
  - Hyperkalaemia [Fatal]
  - Oxygen saturation decreased [Unknown]
  - Tachypnoea [Fatal]
  - General physical health deterioration [Fatal]
  - Sepsis [Fatal]
  - Off label use [Unknown]
  - Renal failure [Fatal]

NARRATIVE: CASE EVENT DATE: 201805
